FAERS Safety Report 4947745-2 (Version None)
Quarter: 2006Q1

REPORT INFORMATION
  Report Type: 
  Country: None (occurrence: None)
  Receive Date: 20060320
  Receipt Date: 20060309
  Transmission Date: 20060701
  Serious: Yes (Other)
  Sender: FDA-Public Use
  Company Number: PHBS2006JP03881

PATIENT
  Sex: Male

DRUGS (1)
  1. NEORAL [Suspect]
     Indication: INTERSTITIAL LUNG DISEASE
     Route: 048
     Dates: start: 20060101

REACTIONS (3)
  - INCORRECT DOSE ADMINISTERED [None]
  - JUDGEMENT IMPAIRED [None]
  - MUSCLE SPASMS [None]
